FAERS Safety Report 24561981 (Version 1)
Quarter: 2024Q4

REPORT INFORMATION
  Report Type: Spontaneous
  Country: NL (occurrence: NL)
  Receive Date: 20241029
  Receipt Date: 20241029
  Transmission Date: 20250115
  Serious: Yes (Death, Hospitalization, Other)
  Sender: SANOFI AVENTIS
  Company Number: NL-SA-2024SA310629

PATIENT
  Age: 60 Year
  Sex: Male
  Weight: 69 kg

DRUGS (4)
  1. DUPILUMAB [Suspect]
     Active Substance: DUPILUMAB
     Indication: Chronic rhinosinusitis with nasal polyps
     Dosage: 300 MG, QOW
     Route: 058
     Dates: start: 20240429, end: 2024
  2. CINNARIZINE [Concomitant]
     Active Substance: CINNARIZINE
     Indication: Meniere^s disease
     Dosage: 5 MG
     Route: 048
     Dates: start: 20230925
  3. FLUTICASONE PROPIONATE [Concomitant]
     Active Substance: FLUTICASONE PROPIONATE
     Indication: Chronic rhinosinusitis with nasal polyps
     Dosage: 1 MG/ML
     Route: 045
     Dates: start: 20190226
  4. METHYLPREDNISOLONE [Concomitant]
     Active Substance: METHYLPREDNISOLONE
     Dosage: UNK

REACTIONS (17)
  - Myocardial infarction [Fatal]
  - Ischaemic cardiomyopathy [Unknown]
  - Renal infarct [Unknown]
  - Cerebral infarction [Unknown]
  - Aphasia [Unknown]
  - Apraxia [Unknown]
  - Cerebral ischaemia [Unknown]
  - Sinusitis [Unknown]
  - Headache [Unknown]
  - Pyrexia [Unknown]
  - Arthralgia [Unknown]
  - Coronary artery disease [Unknown]
  - Peripheral arterial occlusive disease [Unknown]
  - Giant cell arteritis [Unknown]
  - Vasculitis [Unknown]
  - Eye disorder [Unknown]
  - Eosinophilia [Unknown]

NARRATIVE: CASE EVENT DATE: 20240101
